FAERS Safety Report 7294998-4 (Version None)
Quarter: 2011Q1

REPORT INFORMATION
  Report Type: 
  Country: None (occurrence: None)
  Receive Date: 20110216
  Receipt Date: 20110207
  Transmission Date: 20110831
  Serious: Yes (Hospitalization, Other)
  Sender: FDA-Public Use
  Company Number: AU-SANOFI-AVENTIS-2011SA007709

PATIENT
  Age: 67 Year
  Sex: Female

DRUGS (8)
  1. SOMAC [Concomitant]
  2. DIAFORMIN [Concomitant]
  3. DIAMICRON [Concomitant]
  4. TEGRETOL [Concomitant]
  5. PLAQUENIL [Concomitant]
  6. METHOTREXATE [Concomitant]
  7. ARAVA [Suspect]
     Route: 048
     Dates: start: 20051129
  8. FOLIC ACID [Concomitant]

REACTIONS (2)
  - GASTROINTESTINAL CARCINOMA [None]
  - INTESTINAL POLYP [None]
